FAERS Safety Report 25128084 (Version 1)
Quarter: 2025Q1

REPORT INFORMATION
  Report Type: Spontaneous
  Country: US (occurrence: US)
  Receive Date: 20250327
  Receipt Date: 20250327
  Transmission Date: 20250409
  Serious: Yes (Other)
  Sender: ASTELLAS
  Company Number: US-ASTELLAS-2025-AER-015629

PATIENT
  Sex: Female

DRUGS (1)
  1. VEOZAH [Suspect]
     Active Substance: FEZOLINETANT
     Indication: Hot flush
     Route: 050
     Dates: start: 202412

REACTIONS (2)
  - Neoplasm recurrence [Unknown]
  - Phyllodes tumour [Unknown]

NARRATIVE: CASE EVENT DATE: 20250201
